FAERS Safety Report 11746540 (Version 1)
Quarter: 2015Q4

REPORT INFORMATION
  Report Type: Spontaneous
  Country: US (occurrence: None)
  Receive Date: 20151116
  Receipt Date: 20151116
  Transmission Date: 20160304
  Serious: Yes (Death)
  Sender: FDA-Public Use
  Company Number: None

PATIENT
  Age: 18 Year
  Sex: Male

DRUGS (2)
  1. MYCOPHENOLATE 500 MG TABLETS ROXANE [Suspect]
     Active Substance: MYCOPHENOLIC ACID
     Indication: HEART TRANSPLANT
     Dosage: 500 MG  1 BID  PO
     Route: 048
     Dates: start: 20140820, end: 20151005
  2. TACROLIMUS 1MG CAPSULE DR. REDDYS [Suspect]
     Active Substance: TACROLIMUS
     Indication: HEART TRANSPLANT
     Dosage: 1MG  1 QAM  1QPM
     Route: 048
     Dates: start: 20140411, end: 20151005

REACTIONS (1)
  - Death [None]

NARRATIVE: CASE EVENT DATE: 20151007
